FAERS Safety Report 9722998 (Version 1)
Quarter: 2013Q4

REPORT INFORMATION
  Report Type: Spontaneous
  Country: US (occurrence: None)
  Receive Date: 20131127
  Receipt Date: 20131127
  Transmission Date: 20140711
  Serious: Yes (Other)
  Sender: FDA-Public Use
  Company Number: None

PATIENT
  Age: 32 Year
  Sex: Female
  Weight: 89 kg

DRUGS (1)
  1. PRECEDEX [Suspect]
     Indication: SEDATIVE THERAPY
     Route: 042
     Dates: start: 20131123, end: 20131125

REACTIONS (2)
  - Pneumonia [None]
  - Pyrexia [None]
